FAERS Safety Report 8544783-8 (Version None)
Quarter: 2012Q3

REPORT INFORMATION
  Report Type: 
  Country: None (occurrence: None)
  Receive Date: 20120727
  Receipt Date: 20120719
  Transmission Date: 20120928
  Serious: Yes (Hospitalization)
  Sender: FDA-Public Use
  Company Number: FR-UCBSA-062248

PATIENT
  Age: 56 Year
  Sex: Female

DRUGS (11)
  1. ACETAMINOPHEN [Suspect]
     Indication: PAIN
     Route: 048
     Dates: start: 20120606, end: 20120612
  2. LOVENOX [Suspect]
     Indication: PROPHYLAXIS
     Route: 058
     Dates: start: 20120609, end: 20120612
  3. DEPAKINE CHRONO LP [Concomitant]
     Indication: EPILEPSY
     Dosage: 500 MG
  4. TRAMADOL HYDROCHLORIDE [Concomitant]
     Dates: start: 20120606, end: 20120609
  5. KEPPRA [Suspect]
     Indication: EPILEPSY
     Route: 048
     Dates: start: 20120605, end: 20120612
  6. PROPOFOL [Concomitant]
     Dates: start: 20120605, end: 20120607
  7. DIPRIVAN [Concomitant]
     Dates: start: 20120607, end: 20120709
  8. NEXIUM [Concomitant]
     Dates: start: 20120605, end: 20120609
  9. LANSOPRAZOLE [Concomitant]
     Dates: start: 20120607, end: 20120609
  10. NICARDIPINE HCL [Suspect]
     Indication: HYPERTENSION
     Route: 048
     Dates: start: 20120606, end: 20120612
  11. ATORVASTATIN [Concomitant]
     Dates: start: 20120606, end: 20120609

REACTIONS (1)
  - CYTOLYTIC HEPATITIS [None]
